FAERS Safety Report 6932986-5 (Version None)
Quarter: 2010Q3

REPORT INFORMATION
  Report Type: 
  Country: None (occurrence: None)
  Receive Date: 20100819
  Receipt Date: 20100810
  Transmission Date: 20110219
  Serious: Yes (Other)
  Sender: FDA-Public Use
  Company Number: US-GILEAD-2010-0030415

PATIENT
  Age: 39 Year
  Sex: Female

DRUGS (8)
  1. VIREAD [Suspect]
     Indication: HIV INFECTION
     Route: 048
     Dates: start: 20100324, end: 20100513
  2. EMTRIVA [Suspect]
     Indication: HIV INFECTION
     Route: 048
     Dates: end: 20100323
  3. COMBIVIR [Concomitant]
     Indication: HIV INFECTION
     Dates: start: 20100514
  4. NORVIR [Concomitant]
     Indication: HIV INFECTION
     Route: 048
  5. KALETRA [Concomitant]
     Indication: HIV INFECTION
     Route: 048
     Dates: start: 20100324, end: 20100513
  6. ISENTRESS [Concomitant]
     Indication: HIV INFECTION
     Route: 048
     Dates: end: 20100323
  7. PREZISTA [Concomitant]
     Indication: HIV INFECTION
     Route: 048
     Dates: start: 20090101, end: 20091201
  8. PREZISTA [Concomitant]
     Route: 048
     Dates: start: 20100514

REACTIONS (4)
  - ALPHA 1 FOETOPROTEIN ABNORMAL [None]
  - HYPOTENSION [None]
  - STILLBIRTH [None]
  - UROSEPSIS [None]
